FAERS Safety Report 24453554 (Version 2)
Quarter: 2024Q4

REPORT INFORMATION
  Report Type: Report from Study
  Country: US (occurrence: US)
  Receive Date: 20241017
  Receipt Date: 20241018
  Transmission Date: 20250114
  Serious: No
  Sender: ROCHE
  Company Number: US-ROCHE-3106362

PATIENT
  Age: 53 Year
  Sex: Female
  Weight: 81.65 kg

DRUGS (13)
  1. RITUXAN [Suspect]
     Active Substance: RITUXIMAB
     Indication: Urticaria
     Dosage: FREQUENCY TEXT:EVERY 6 MONTH
     Route: 042
     Dates: start: 202107, end: 20230616
  2. RITUXAN [Suspect]
     Active Substance: RITUXIMAB
     Indication: Idiopathic urticaria
  3. XOLAIR [Suspect]
     Active Substance: OMALIZUMAB
     Indication: Idiopathic urticaria
     Route: 065
  4. NOVOLOG [Concomitant]
     Active Substance: INSULIN ASPART
     Dosage: CONTINUOUS PUMP
     Route: 058
  5. ZYRTEC [Concomitant]
     Active Substance: CETIRIZINE HYDROCHLORIDE
     Route: 048
  6. REPATHA [Concomitant]
     Active Substance: EVOLOCUMAB
     Route: 058
  7. ACIPHEX [Concomitant]
     Active Substance: RABEPRAZOLE SODIUM
     Route: 048
  8. TRULANCE [Concomitant]
     Active Substance: PLECANATIDE
     Route: 048
  9. NABUMETONE [Concomitant]
     Active Substance: NABUMETONE
     Route: 048
  10. ROBAXIN [Concomitant]
     Active Substance: METHOCARBAMOL
     Route: 048
  11. ESTRADIOL [Concomitant]
     Active Substance: ESTRADIOL
     Route: 048
  12. ALBUTEROL [Concomitant]
     Active Substance: ALBUTEROL
     Dosage: TAKES AS NEEDED. TAKES 2 PUFFS WHEN NEEDED AND BARELY USES
  13. HYDROXYZINE [Concomitant]
     Active Substance: HYDROXYZINE HYDROCHLORIDE

REACTIONS (2)
  - Off label use [Unknown]
  - No adverse event [Unknown]

NARRATIVE: CASE EVENT DATE: 20210701
